FAERS Safety Report 7380918-0 (Version None)
Quarter: 2011Q1

REPORT INFORMATION
  Report Type: 
  Country: None (occurrence: None)
  Receive Date: 20110329
  Receipt Date: 20110324
  Transmission Date: 20110831
  Serious: Yes (Death, Hospitalization)
  Sender: FDA-Public Use
  Company Number: PHHO2010US15260

PATIENT
  Sex: Male
  Weight: 82.4 kg

DRUGS (5)
  1. AFINITOR [Suspect]
     Indication: NEOPLASM MALIGNANT
     Dosage: 5 MG TWICE PER WEEK
     Route: 048
     Dates: start: 20100714, end: 20100906
  2. SIMVASTATIN [Concomitant]
  3. LISINOPRIL [Concomitant]
  4. OMEPRAZOLE [Concomitant]
  5. ACETAMINOPHEN [Concomitant]

REACTIONS (6)
  - DYSPNOEA [None]
  - RESPIRATORY FAILURE [None]
  - PLEURODESIS [None]
  - MALIGNANT PLEURAL EFFUSION [None]
  - ATRIAL FIBRILLATION [None]
  - HYPOTENSION [None]
